FAERS Safety Report 6107357-4 (Version None)
Quarter: 2009Q1

REPORT INFORMATION
  Report Type: 
  Country: None (occurrence: None)
  Receive Date: 20090309
  Receipt Date: 20090226
  Transmission Date: 20090719
  Serious: Yes (Hospitalization, Other)
  Sender: FDA-Public Use
  Company Number: FR-JNJFOC-20080703171

PATIENT
  Age: 38 Year
  Sex: Female
  Weight: 50 kg

DRUGS (6)
  1. REMICADE [Suspect]
     Route: 042
  2. REMICADE [Suspect]
     Route: 042
  3. REMICADE [Suspect]
     Route: 042
  4. REMICADE [Suspect]
     Indication: PSORIASIS
     Route: 042
  5. CIMZIA [Suspect]
     Indication: CROHN'S DISEASE
  6. AZATHIOPRINE [Suspect]
     Indication: CROHN'S DISEASE

REACTIONS (6)
  - ANAL ABSCESS [None]
  - COLECTOMY [None]
  - COLONIC STENOSIS [None]
  - FISTULA [None]
  - POST PROCEDURAL FISTULA [None]
  - POSTOPERATIVE ILEUS [None]
